FAERS Safety Report 7268965-0 (Version None)
Quarter: 2011Q1

REPORT INFORMATION
  Report Type: 
  Country: None (occurrence: None)
  Receive Date: 20110201
  Receipt Date: 20110105
  Transmission Date: 20110831
  Serious: Yes (Hospitalization)
  Sender: FDA-Public Use
  Company Number: JP-PFIZER INC-2011022115

PATIENT
  Age: 76 Year
  Sex: Female

DRUGS (3)
  1. SEIBULE [Suspect]
     Indication: DIABETES MELLITUS
     Dosage: UNK
     Route: 065
     Dates: start: 20091101, end: 20100301
  2. OXYGEN [Concomitant]
  3. MITIGLINIDE [Concomitant]
     Dosage: UNK
     Dates: start: 20091001

REACTIONS (1)
  - PNEUMATOSIS INTESTINALIS [None]
